FAERS Safety Report 4517038-6 (Version None)
Quarter: 2004Q4

REPORT INFORMATION
  Report Type: 
  Country: None (occurrence: None)
  Receive Date: 20041029
  Receipt Date: 20041001
  Transmission Date: 20050328
  Serious: No
  Sender: FDA-Public Use
  Company Number: 2004-120787-NL

PATIENT
  Age: 39 Year
  Sex: Female
  Weight: 84.1 kg

DRUGS (1)
  1. NUVARING [Suspect]
     Indication: ENDOMETRIOSIS
     Dosage: 1 DF DAILY VAGINAL
     Route: 067

REACTIONS (4)
  - DYSMENORRHOEA [None]
  - DYSPAREUNIA [None]
  - MENORRHAGIA [None]
  - METRORRHAGIA [None]
